FAERS Safety Report 6668701-2 (Version None)
Quarter: 2010Q1

REPORT INFORMATION
  Report Type: 
  Country: None (occurrence: None)
  Receive Date: 20100315
  Receipt Date: 20100305
  Transmission Date: 20100710
  Serious: Yes (Hospitalization)
  Sender: FDA-Public Use
  Company Number: 2010022230

PATIENT
  Age: 15 Year
  Sex: Male

DRUGS (2)
  1. SANDOGLOBULIN [Suspect]
     Indication: IDIOPATHIC THROMBOCYTOPENIC PURPURA
     Dosage: 33G, 51G PLANNED/33G ADMINISTERED, 12G, 3G
     Route: 042
     Dates: start: 20100203, end: 20100203
  2. SANDOGLOBULIN [Suspect]
     Indication: IDIOPATHIC THROMBOCYTOPENIC PURPURA
     Dosage: 33G, 51G PLANNED/33G ADMINISTERED, 12G, 3G
     Route: 042
     Dates: start: 20100203, end: 20100203

REACTIONS (1)
  - LOCALISED OEDEMA [None]
